FAERS Safety Report 5866816-X (Version None)
Quarter: 2008Q3

REPORT INFORMATION
  Report Type: 
  Country: None (occurrence: None)
  Receive Date: 20080827
  Receipt Date: 20080818
  Transmission Date: 20090109
  Serious: Yes (Hospitalization, Other)
  Sender: FDA-Public Use
  Company Number: 2008AP001888

PATIENT
  Age: 80 Year
  Sex: Female

DRUGS (6)
  1. PRAVASTATIN SODIUM [Suspect]
     Indication: HYPERCHOLESTEROLAEMIA
     Dosage: 20 MG
  2. DICLOFENAC SODIUM [Concomitant]
  3. MISOPROSTOL [Concomitant]
  4. ATENOLOL [Concomitant]
  5. LEVOTHYROXINE SODUM (LEVOTHYROXINE SODIUM) [Concomitant]
  6. ACETYLSALICYLIC ACID SRT [Concomitant]

REACTIONS (14)
  - ANAEMIA [None]
  - ANOREXIA [None]
  - BLOOD ALBUMIN DECREASED [None]
  - BLOOD UREA INCREASED [None]
  - COLITIS [None]
  - DEHYDRATION [None]
  - DRUG INTERACTION [None]
  - DRUG TOXICITY [None]
  - HEART RATE INCREASED [None]
  - HYPERTENSION [None]
  - LARGE INTESTINAL ULCER [None]
  - PLATELET COUNT INCREASED [None]
  - PSEUDOPOLYPOSIS [None]
  - WEIGHT DECREASED [None]
